FAERS Safety Report 8782684 (Version 1)
Quarter: 2012Q4

REPORT INFORMATION
  Report Type: Report from Study
  Country: US (occurrence: US)
  Receive Date: 20120913
  Receipt Date: 20120913
  Transmission Date: 20130627
  Serious: No
  Sender: FDA-Public Use
  Company Number: US-VERTEX PHARMACEUTICAL INC.-AE-2012-010278

PATIENT

DRUGS (6)
  1. INCIVEK [Suspect]
     Indication: HEPATITIS C
     Route: 048
     Dates: start: 201204
  2. PEGINTRON [Concomitant]
     Indication: HEPATITIS C
     Route: 058
     Dates: start: 201204
  3. RIBASPHERE [Concomitant]
     Indication: HEPATITIS C
     Route: 048
     Dates: start: 201204
  4. UNISOM SLEEP AID [Concomitant]
  5. ALLEGRA [Concomitant]
  6. COMPLETE MULTIVITAMIN [Concomitant]

REACTIONS (4)
  - Dyspepsia [Unknown]
  - Injection site rash [Unknown]
  - Fatigue [Unknown]
  - Haemoglobin decreased [Unknown]
